FAERS Safety Report 21069364 (Version 2)
Quarter: 2022Q3

REPORT INFORMATION
  Report Type: Report from Study
  Country: US (occurrence: US)
  Receive Date: 20220712
  Receipt Date: 20220811
  Transmission Date: 20221027
  Serious: Yes (Hospitalization)
  Sender: FDA-Public Use
  Company Number: US-UCBSA-2022034721

PATIENT
  Age: 62 Year
  Sex: Female

DRUGS (1)
  1. CERTOLIZUMAB PEGOL [Suspect]
     Active Substance: CERTOLIZUMAB PEGOL
     Indication: Rheumatoid arthritis
     Dosage: 400 MILLIGRAM, EV 2 WEEKS(QOW)
     Dates: start: 20220509, end: 2022

REACTIONS (7)
  - Spinal operation [Not Recovered/Not Resolved]
  - Back pain [Recovering/Resolving]
  - Sciatica [Recovering/Resolving]
  - Activated partial thromboplastin time abnormal [Recovering/Resolving]
  - Gait disturbance [Not Recovered/Not Resolved]
  - Prothrombin time abnormal [Not Recovered/Not Resolved]
  - Blood cholesterol increased [Not Recovered/Not Resolved]

NARRATIVE: CASE EVENT DATE: 20220622
